FAERS Safety Report 17348553 (Version 1)
Quarter: 2020Q1

REPORT INFORMATION
  Report Type: Report from Study
  Country: US (occurrence: US)
  Receive Date: 20200129
  Receipt Date: 20200129
  Transmission Date: 20200409
  Serious: No
  Sender: FDA-Public Use
  Company Number: US-EXELIXIS-CABO-19024295

PATIENT
  Age: 63 Year
  Sex: Female

DRUGS (2)
  1. CABOMETYX [Suspect]
     Active Substance: CABOZANTINIB S-MALATE
     Indication: RENAL CANCER
     Dosage: 60 MG, QD
     Route: 048
     Dates: start: 20190517
  2. CABOMETYX [Suspect]
     Active Substance: CABOZANTINIB S-MALATE
     Indication: METASTASES TO PELVIS
     Dosage: 40 MG, QD
     Route: 048

REACTIONS (4)
  - Diarrhoea [Unknown]
  - Dysgeusia [Unknown]
  - Platelet count decreased [Unknown]
  - Constipation [Unknown]

NARRATIVE: CASE EVENT DATE: 201910
